FAERS Safety Report 7711839-9 (Version None)
Quarter: 2011Q3

REPORT INFORMATION
  Report Type: 
  Country: None (occurrence: None)
  Receive Date: 20110826
  Receipt Date: 20110816
  Transmission Date: 20111222
  Serious: Yes (Hospitalization)
  Sender: FDA-Public Use
  Company Number: US-JNJFOC-20110808008

PATIENT
  Sex: Male
  Weight: 90.72 kg

DRUGS (5)
  1. PRAVASTATIN [Concomitant]
     Indication: BLOOD CHOLESTEROL INCREASED
     Route: 048
  2. SIMPONI [Suspect]
     Indication: ANKYLOSING SPONDYLITIS
     Route: 058
     Dates: start: 20110722
  3. SIMPONI [Suspect]
     Route: 058
     Dates: start: 20101101, end: 20110201
  4. GEMFIBROZIL [Concomitant]
     Indication: BLOOD CHOLESTEROL INCREASED
     Route: 048
  5. LOVAZA [Concomitant]
     Indication: BLOOD CHOLESTEROL INCREASED
     Route: 048

REACTIONS (2)
  - KIDNEY INFECTION [None]
  - THERAPEUTIC RESPONSE DECREASED [None]
